FAERS Safety Report 20524014 (Version 2)
Quarter: 2023Q4

REPORT INFORMATION
  Report Type: Spontaneous
  Country: US (occurrence: None)
  Receive Date: 20220228
  Receipt Date: 20231003
  Transmission Date: 20240109
  Serious: Yes (Other)
  Sender: FDA-Public Use
  Company Number: US-ROCHE-3026870

PATIENT
  Sex: Female
  Weight: 94.432 kg

DRUGS (7)
  1. OCREVUS [Suspect]
     Active Substance: OCRELIZUMAB
     Indication: Product used for unknown indication
     Dosage: NEXT DOSE ON 15/AUG/2017
     Route: 065
     Dates: start: 20170801
  2. OCREVUS [Suspect]
     Active Substance: OCRELIZUMAB
     Dosage: 29/JAN/2019 AND 30/JUL/2019
     Route: 065
     Dates: start: 20180731
  3. OCREVUS [Suspect]
     Active Substance: OCRELIZUMAB
     Dosage: 11/FEB/2020, 11/AUG/2020, 16/FEB/2021 AND 17/AUG/2021
     Route: 065
     Dates: start: 20200128
  4. AVONEX [Concomitant]
     Active Substance: INTERFERON BETA-1A
  5. REBIF [Concomitant]
     Active Substance: INTERFERON BETA-1A
  6. GILENYA [Concomitant]
     Active Substance: FINGOLIMOD HYDROCHLORIDE
  7. TYSABRI [Concomitant]
     Active Substance: NATALIZUMAB

REACTIONS (3)
  - Asthma [Recovered/Resolved]
  - Intraductal proliferative breast lesion [Not Recovered/Not Resolved]
  - COVID-19 [Unknown]

NARRATIVE: CASE EVENT DATE: 20191030
